FAERS Safety Report 7081008-7 (Version None)
Quarter: 2010Q4

REPORT INFORMATION
  Report Type: 
  Country: None (occurrence: None)
  Receive Date: 20101103
  Receipt Date: 20100929
  Transmission Date: 20110411
  Serious: Yes (Death, Other)
  Sender: FDA-Public Use
  Company Number: CO-GENZYME-CLOF-1001277

PATIENT
  Age: 17 Year
  Sex: Male

DRUGS (3)
  1. CLOLAR [Suspect]
     Indication: NON-HODGKIN'S LYMPHOMA
     Dosage: 40 MG/M2, QDX5
     Route: 042
     Dates: start: 20090806, end: 20090810
  2. ONDANSETRON [Concomitant]
     Dosage: 8 MG, UNK
     Route: 042
  3. DEXAMETHASONE [Concomitant]
     Dosage: 8 MG, NA
     Route: 042

REACTIONS (6)
  - BONE MARROW FAILURE [None]
  - NON-HODGKIN'S LYMPHOMA [None]
  - PAIN [None]
  - PLEURAL EFFUSION [None]
  - PNEUMONIA [None]
  - RESPIRATORY FAILURE [None]
